FAERS Safety Report 21337750 (Version 8)
Quarter: 2023Q1

REPORT INFORMATION
  Report Type: Spontaneous
  Country: US (occurrence: US)
  Receive Date: 20220915
  Receipt Date: 20230329
  Transmission Date: 20230417
  Serious: No
  Sender: FDA-Public Use
  Company Number: US-NOVARTISTESTPH-NVSC2022US208055

PATIENT
  Age: 62 Year
  Sex: Female

DRUGS (4)
  1. COSENTYX [Suspect]
     Active Substance: SECUKINUMAB
     Indication: Psoriatic arthropathy
     Dosage: 150 MG, QW
     Route: 058
     Dates: start: 20220817
  2. COSENTYX [Suspect]
     Active Substance: SECUKINUMAB
     Dosage: UNK (SECOND LOADING DOSE)
     Route: 065
     Dates: start: 20220824
  3. COSENTYX [Suspect]
     Active Substance: SECUKINUMAB
     Dosage: 150 MG, QW
     Route: 058
     Dates: end: 202209
  4. TALTZ [Concomitant]
     Active Substance: IXEKIZUMAB
     Indication: Product used for unknown indication
     Dosage: UNK
     Route: 065

REACTIONS (7)
  - Urinary tract infection [Recovered/Resolved]
  - Vaginal infection [Unknown]
  - Dry eye [Unknown]
  - Pain [Not Recovered/Not Resolved]
  - Therapeutic response unexpected [Unknown]
  - Drug effect less than expected [Not Recovered/Not Resolved]
  - Inappropriate schedule of product administration [Unknown]

NARRATIVE: CASE EVENT DATE: 20220824
